FAERS Safety Report 8914015 (Version 1)
Quarter: 2012Q4

REPORT INFORMATION
  Report Type: Spontaneous
  Country: US (occurrence: None)
  Receive Date: 20121115
  Receipt Date: 20121115
  Transmission Date: 20130627
  Serious: Yes (Hospitalization)
  Sender: FDA-Public Use
  Company Number: None

PATIENT
  Age: 62 Year
  Sex: Female
  Weight: 83.01 kg

DRUGS (1)
  1. LISINOPRIL [Suspect]

REACTIONS (3)
  - Swollen tongue [None]
  - Local swelling [None]
  - Angioedema [None]
